FAERS Safety Report 7617182-0 (Version None)
Quarter: 2011Q3

REPORT INFORMATION
  Report Type: 
  Country: None (occurrence: None)
  Receive Date: 20110718
  Receipt Date: 20110704
  Transmission Date: 20111222
  Serious: Yes (Other)
  Sender: FDA-Public Use
  Company Number: TR-RANBAXY-2011RR-46025

PATIENT
  Age: 24 Year
  Sex: Female

DRUGS (2)
  1. METOCLOPRAMIDE [Suspect]
     Indication: ANTIEMETIC SUPPORTIVE CARE
     Dosage: 30 MG, UNK
     Route: 065
  2. METRONIDAZOLE [Concomitant]
     Indication: AMOEBIC DYSENTERY
     Route: 065

REACTIONS (1)
  - DYSTONIA [None]
